FAERS Safety Report 14156019 (Version 3)
Quarter: 2018Q2

REPORT INFORMATION
  Report Type: Spontaneous
  Country: FR (occurrence: FR)
  Receive Date: 20171103
  Receipt Date: 20180613
  Transmission Date: 20180711
  Serious: Yes (Hospitalization)
  Sender: FDA-Public Use
  Company Number: FR-ASTRAZENECA-2017SF11408

PATIENT
  Age: 28277 Day
  Sex: Female
  Weight: 51 kg

DRUGS (3)
  1. FASLODEX [Suspect]
     Active Substance: FULVESTRANT
     Indication: BREAST CANCER METASTATIC
     Dosage: 500 MG, 250 MG/5 ML
     Route: 030
     Dates: start: 20170426, end: 201709
  2. IBRANCE [Suspect]
     Active Substance: PALBOCICLIB
     Indication: BREAST CANCER METASTATIC
     Dosage: 100 MG EVERY CYCLE, 100 MG, CYCLIC (21 DAYS ON 28) EVERY CYCLE
     Route: 048
     Dates: start: 20170705, end: 20170920
  3. IBRANCE [Suspect]
     Active Substance: PALBOCICLIB
     Indication: BREAST CANCER METASTATIC
     Dosage: 100.0MG EVERY CYCLE
     Route: 048
     Dates: start: 20170426, end: 20170705

REACTIONS (2)
  - Cholestasis [Recovering/Resolving]
  - Hepatocellular injury [Recovered/Resolved]

NARRATIVE: CASE EVENT DATE: 20170919
